FAERS Safety Report 4862480-7 (Version None)
Quarter: 2005Q4

REPORT INFORMATION
  Report Type: 
  Country: None (occurrence: None)
  Receive Date: 20051219
  Receipt Date: 20051219
  Transmission Date: 20060501
  Serious: Yes (Death)
  Sender: FDA-Public Use
  Company Number: None

PATIENT
  Age: 20 Year
  Sex: Male
  Weight: 77.1115 kg

DRUGS (2)
  1. EFFEXOR XR [Suspect]
     Indication: ANXIETY
     Dosage: 75MG  ONE A DAY PO
     Route: 048
     Dates: start: 20040701, end: 20050103
  2. EFFEXOR XR [Suspect]
     Dosage: 35.7MG  ONE A DAY PO
     Route: 048
     Dates: start: 20050104, end: 20050104

REACTIONS (6)
  - COMPLETED SUICIDE [None]
  - FEELING ABNORMAL [None]
  - INTENTIONAL SELF-INJURY [None]
  - PAIN [None]
  - PHARMACEUTICAL PRODUCT COMPLAINT [None]
  - PSYCHOTIC DISORDER [None]
